FAERS Safety Report 9846571 (Version 1)
Quarter: 2014Q1

REPORT INFORMATION
  Report Type: Spontaneous
  Country: US (occurrence: US)
  Receive Date: 20140127
  Receipt Date: 20140127
  Transmission Date: 20141002
  Serious: Yes (Other)
  Sender: FDA-Public Use
  Company Number: US-GLAXOSMITHKLINE-A1057246A

PATIENT
  Age: 50 Year
  Sex: Male

DRUGS (4)
  1. ADVAIR [Suspect]
     Indication: LUNG INFECTION
     Dosage: 1PUFF TWICE PER DAY
     Route: 055
     Dates: start: 20140109
  2. ENALAPRIL [Concomitant]
  3. HYDROCHLOROTHIAZIDE [Concomitant]
  4. ANTIBIOTICS [Concomitant]

REACTIONS (3)
  - Lung infection [Not Recovered/Not Resolved]
  - Cough [Not Recovered/Not Resolved]
  - Dyspnoea [Not Recovered/Not Resolved]
